FAERS Safety Report 10006007 (Version 1)
Quarter: 2014Q1

REPORT INFORMATION
  Report Type: Spontaneous
  Country: US (occurrence: US)
  Receive Date: 20140313
  Receipt Date: 20140313
  Transmission Date: 20141002
  Serious: Yes (Death, Other)
  Sender: FDA-Public Use
  Company Number: PHEH2014US005050

PATIENT
  Age: 55 Year
  Sex: Male

DRUGS (2)
  1. ZOMETA [Suspect]
     Dosage: UNK UKN, UNK
  2. ZOMETA [Suspect]
     Dosage: UNK UKN, UNK
     Dates: start: 201401

REACTIONS (2)
  - Death [Fatal]
  - Convulsion [Not Recovered/Not Resolved]
